FAERS Safety Report 6140586-2 (Version None)
Quarter: 2009Q2

REPORT INFORMATION
  Report Type: 
  Country: None (occurrence: None)
  Receive Date: 20090402
  Receipt Date: 20090324
  Transmission Date: 20091009
  Serious: Yes (Other)
  Sender: FDA-Public Use
  Company Number: US-WYE-H08714209

PATIENT
  Age: 81 Year
  Sex: Female

DRUGS (11)
  1. ADVIL PM [Suspect]
     Indication: INSOMNIA
     Route: 048
     Dates: end: 20090323
  2. METFORMIN HCL [Concomitant]
     Indication: DIABETES MELLITUS
  3. GLIPIZIDE [Concomitant]
  4. ATENOLOL [Concomitant]
  5. EXCEDRIN P.M. [Concomitant]
  6. LEVOTHYROXINE SODIUM [Concomitant]
  7. LIPITOR [Concomitant]
  8. CIPROFLOXACIN HCL [Concomitant]
     Indication: BASAL CELL CARCINOMA
  9. TYLENOL (CAPLET) [Concomitant]
  10. BENICAR [Concomitant]
  11. FELODIPINE [Concomitant]

REACTIONS (2)
  - BASAL CELL CARCINOMA [None]
  - DRUG INEFFECTIVE [None]
